FAERS Safety Report 14991859 (Version 2)
Quarter: 2018Q2

REPORT INFORMATION
  Report Type: Spontaneous
  Country: VN (occurrence: VN)
  Receive Date: 20180608
  Receipt Date: 20180618
  Transmission Date: 20180711
  Serious: Yes (Other)
  Sender: FDA-Public Use
  Company Number: PHHY2018VN017629

PATIENT
  Age: 24 Year
  Sex: Male
  Weight: 67 kg

DRUGS (3)
  1. VIGAMOX [Suspect]
     Active Substance: MOXIFLOXACIN HYDROCHLORIDE
     Indication: FOREIGN BODY SENSATION IN EYES
     Dosage: UNK UNK, 5QD
     Route: 047
     Dates: start: 20180523, end: 20180528
  2. VIGAMOX [Suspect]
     Active Substance: MOXIFLOXACIN HYDROCHLORIDE
     Indication: INJURY CORNEAL
  3. SYSTANE ULTRA [Concomitant]
     Active Substance: POLYETHYLENE GLYCOL 400\PROPYLENE GLYCOL
     Indication: CONJUNCTIVITIS
     Dosage: UNK, 6QD
     Route: 047
     Dates: start: 20180523, end: 20180604

REACTIONS (2)
  - Vision blurred [Recovered/Resolved]
  - Visual impairment [Recovered/Resolved]

NARRATIVE: CASE EVENT DATE: 20180524
